FAERS Safety Report 25934250 (Version 1)
Quarter: 2025Q4

REPORT INFORMATION
  Report Type: Report from Study
  Country: CN (occurrence: CN)
  Receive Date: 20251017
  Receipt Date: 20251017
  Transmission Date: 20260118
  Serious: Yes (Hospitalization)
  Sender: ROCHE
  Company Number: CN-ROCHE-10000409938

PATIENT

DRUGS (16)
  1. RITUXIMAB [Suspect]
     Active Substance: RITUXIMAB
     Indication: Systemic lupus erythematosus
     Route: 042
  2. RITUXIMAB [Suspect]
     Active Substance: RITUXIMAB
     Indication: Thrombotic thrombocytopenic purpura
  3. MYCOPHENOLATE MOFETIL [Suspect]
     Active Substance: MYCOPHENOLATE MOFETIL
     Indication: Systemic lupus erythematosus
     Route: 065
  4. MYCOPHENOLATE MOFETIL [Suspect]
     Active Substance: MYCOPHENOLATE MOFETIL
     Indication: Thrombotic thrombocytopenic purpura
  5. HYDROXYCHLOROQUINE [Suspect]
     Active Substance: HYDROXYCHLOROQUINE
     Indication: Systemic lupus erythematosus
     Route: 065
  6. HYDROXYCHLOROQUINE [Suspect]
     Active Substance: HYDROXYCHLOROQUINE
     Indication: Thrombotic thrombocytopenic purpura
  7. CYCLOSPORINE [Suspect]
     Active Substance: CYCLOSPORINE
     Indication: Systemic lupus erythematosus
     Route: 065
  8. CYCLOSPORINE [Suspect]
     Active Substance: CYCLOSPORINE
     Indication: Thrombotic thrombocytopenic purpura
  9. TACROLIMUS [Suspect]
     Active Substance: TACROLIMUS
     Indication: Systemic lupus erythematosus
     Route: 065
  10. TACROLIMUS [Suspect]
     Active Substance: TACROLIMUS
     Indication: Thrombotic thrombocytopenic purpura
  11. BELIMUMAB [Suspect]
     Active Substance: BELIMUMAB
     Indication: Systemic lupus erythematosus
     Route: 065
  12. BELIMUMAB [Suspect]
     Active Substance: BELIMUMAB
     Indication: Thrombotic thrombocytopenic purpura
  13. TELITACICEPT [Suspect]
     Active Substance: TELITACICEPT
     Indication: Systemic lupus erythematosus
     Route: 065
  14. TELITACICEPT [Suspect]
     Active Substance: TELITACICEPT
     Indication: Thrombotic thrombocytopenic purpura
  15. PREDNISONE [Suspect]
     Active Substance: PREDNISONE
     Indication: Systemic lupus erythematosus
     Route: 065
  16. PREDNISONE [Suspect]
     Active Substance: PREDNISONE
     Indication: Thrombotic thrombocytopenic purpura

REACTIONS (4)
  - COVID-19 [Unknown]
  - Pneumonia [Unknown]
  - Urinary tract infection [Unknown]
  - Off label use [Unknown]
